FAERS Safety Report 9823228 (Version 4)
Quarter: 2014Q3

REPORT INFORMATION
  Report Type: Spontaneous
  Country: US (occurrence: US)
  Receive Date: 20140116
  Receipt Date: 20140714
  Transmission Date: 20150326
  Serious: Yes (Disabling, Other)
  Sender: FDA-Public Use
  Company Number: US-009507513-1401USA002083

PATIENT
  Sex: Male

DRUGS (2)
  1. FOSAMAX [Suspect]
     Active Substance: ALENDRONATE SODIUM
     Indication: BONE DENSITY DECREASED
     Dosage: 70 MG, UNK
     Route: 048
     Dates: start: 20040303, end: 20110613
  2. ALENDRONATE SODIUM. [Suspect]
     Active Substance: ALENDRONATE SODIUM
     Dosage: 70 MG, UNK
     Route: 048
     Dates: start: 20081205, end: 20090426

REACTIONS (6)
  - Sinusitis [Unknown]
  - Tooth fracture [Unknown]
  - Osteonecrosis of jaw [Not Recovered/Not Resolved]
  - Lower respiratory tract infection [Unknown]
  - Diabetes mellitus [Unknown]
  - Gingival disorder [Unknown]

NARRATIVE: CASE EVENT DATE: 201103
